FAERS Safety Report 24183300 (Version 2)
Quarter: 2024Q3

REPORT INFORMATION
  Report Type: Spontaneous
  Country: US (occurrence: US)
  Receive Date: 20240807
  Receipt Date: 20240813
  Transmission Date: 20241016
  Serious: No
  Sender: ABBVIE
  Company Number: US-ABBVIE-5865144

PATIENT
  Sex: Female
  Weight: 101 kg

DRUGS (15)
  1. CREON [Suspect]
     Active Substance: PANCRELIPASE AMYLASE\PANCRELIPASE LIPASE\PANCRELIPASE PROTEASE
     Indication: Neoplasm
     Dosage: FORM STRENGTH: 12000 UNIT?FREQUENCY TEXT: 1 CAP EACH MEAL AND 1 CAP EACH SNACKS
     Route: 048
     Dates: start: 202302
  2. MINOXIDIL [Concomitant]
     Active Substance: MINOXIDIL
     Indication: Blood pressure measurement
  3. ACETAMINOPHEN [Concomitant]
     Active Substance: ACETAMINOPHEN
     Indication: Rheumatoid arthritis
  4. BENADRYL [Concomitant]
     Active Substance: DIPHENHYDRAMINE HYDROCHLORIDE
     Indication: Multiple allergies
  5. GLUCAGON [Concomitant]
     Active Substance: GLUCAGON\GLUCAGON HYDROCHLORIDE\WATER
     Indication: Hypoglycaemia
  6. DILTIAZEM [Concomitant]
     Active Substance: DILTIAZEM
     Indication: Blood pressure measurement
  7. HYDROCORTISONE [Concomitant]
     Active Substance: HYDROCORTISONE\HYDROCORTISONE ACETATE
     Indication: Multiple allergies
  8. CALCIUM ACETATE [Concomitant]
     Active Substance: CALCIUM ACETATE
     Indication: Dyspepsia
  9. ZOFRAN [Concomitant]
     Active Substance: ONDANSETRON HYDROCHLORIDE
     Indication: Nausea
  10. BUMEX [Concomitant]
     Active Substance: BUMETANIDE
     Indication: Blood pressure measurement
  11. GVOKE [Concomitant]
     Active Substance: GLUCAGON
     Indication: Neoplasm
  12. CARVEDILOL [Concomitant]
     Active Substance: CARVEDILOL
     Indication: Blood pressure measurement
  13. EPIPEN [Concomitant]
     Active Substance: EPINEPHRINE
     Indication: Multiple allergies
  14. CLONIDINE [Concomitant]
     Active Substance: CLONIDINE
     Indication: Blood pressure measurement
  15. SIGNIFOR [Concomitant]
     Active Substance: PASIREOTIDE DIASPARTATE
     Indication: Neoplasm

REACTIONS (1)
  - Off label use [Unknown]
